FAERS Safety Report 19018086 (Version 1)
Quarter: 2021Q1

REPORT INFORMATION
  Report Type: Spontaneous
  Country: US (occurrence: US)
  Receive Date: 20210316
  Receipt Date: 20210316
  Transmission Date: 20210420
  Serious: Yes (Other)
  Sender: FDA-Public Use
  Company Number: None

PATIENT
  Age: 37 Year
  Sex: Female
  Weight: 70.3 kg

DRUGS (4)
  1. LEVOTHYROXINE 112 MCG DAILY [Concomitant]
  2. PREDNISONE 5MG DAILY [Concomitant]
  3. ESTRADIOL TRANSDERMAL SYSTEM [Suspect]
     Active Substance: ESTRADIOL
     Indication: SECONDARY HYPOGONADISM
     Dosage: ?          OTHER FREQUENCY:0.1 MG/24H 2X WEEK;?
     Route: 062
     Dates: start: 20210101, end: 20210201
  4. PHENTERMINE 30MG DAILY [Concomitant]

REACTIONS (3)
  - Dermatitis contact [None]
  - Product substitution issue [None]
  - Urticaria [None]

NARRATIVE: CASE EVENT DATE: 20210202
